FAERS Safety Report 4981002-3 (Version None)
Quarter: 2006Q2

REPORT INFORMATION
  Report Type: 
  Country: None (occurrence: None)
  Receive Date: 20060418
  Receipt Date: 20060328
  Transmission Date: 20061013
  Serious: Yes (Death, Hospitalization)
  Sender: FDA-Public Use
  Company Number: US200603000823

PATIENT
  Age: 91 Year
  Sex: Male

DRUGS (2)
  1. FORTEO [Suspect]
     Indication: OSTEOPOROSIS
     Dosage: 20 UG, DAILY (1/D)
     Dates: start: 20050324
  2. FORTEO [Concomitant]

REACTIONS (3)
  - INTESTINAL ISCHAEMIA [None]
  - RENAL CELL CARCINOMA STAGE UNSPECIFIED [None]
  - SPINAL FRACTURE [None]
